FAERS Safety Report 8938820 (Version 1)
Quarter: 2012Q4

REPORT INFORMATION
  Report Type: 
  Country: US (occurrence: US)
  Receive Date: 20121203
  Receipt Date: 20121203
  Transmission Date: 20130627
  Serious: Yes (Hospitalization)
  Sender: FDA-Public Use
  Company Number: US-SANOFI-AVENTIS-2012SA087888

PATIENT
  Age: 72 Year
  Sex: Male

DRUGS (1)
  1. LANTUS [Suspect]
     Indication: DIABETES
     Dosage: 100 units  am, 80 units hs
     Route: 058
     Dates: start: 2004

REACTIONS (2)
  - Cerebrovascular accident [Not Recovered/Not Resolved]
  - Transient ischaemic attack [Not Recovered/Not Resolved]
